FAERS Safety Report 10187444 (Version 2)
Quarter: 2018Q2

REPORT INFORMATION
  Report Type: Spontaneous
  Country: US (occurrence: US)
  Receive Date: 20140522
  Receipt Date: 20180517
  Transmission Date: 20180711
  Serious: No
  Sender: FDA-Public Use
  Company Number: US-SANOFI-AVENTIS-2013SA078807

PATIENT
  Sex: Female

DRUGS (2)
  1. LANTUS SOLOSTAR [Suspect]
     Active Substance: INSULIN GLARGINE
     Indication: INJURY ASSOCIATED WITH DEVICE
     Route: 051
  2. SOLOSTAR [Suspect]
     Active Substance: DEVICE
     Indication: INJURY ASSOCIATED WITH DEVICE

REACTIONS (1)
  - Injury associated with device [Unknown]
